FAERS Safety Report 5669990-3 (Version None)
Quarter: 2008Q1

REPORT INFORMATION
  Report Type: 
  Country: None (occurrence: None)
  Receive Date: 20080317
  Receipt Date: 20080312
  Transmission Date: 20080703
  Serious: Yes (Hospitalization)
  Sender: FDA-Public Use
  Company Number: US-BOEHRINGER INGELHEIM GMBH, GERMANY-2008-BP-03826RO

PATIENT
  Age: 47 Year
  Sex: Male

DRUGS (5)
  1. PREDNISONE TAB [Suspect]
     Indication: SYSTEMIC LUPUS ERYTHEMATOSUS
  2. CIPROFLOXACIN [Concomitant]
     Route: 048
  3. AMPHOTERICIN B [Concomitant]
     Indication: HISTOPLASMOSIS
  4. PENICILLIN [Concomitant]
     Indication: ACTINOMYCOSIS
     Route: 042
  5. PENICILLIN [Concomitant]

REACTIONS (3)
  - ACTINOMYCOSIS [None]
  - HISTOPLASMOSIS [None]
  - TONGUE NECROSIS [None]
